FAERS Safety Report 7615702-3 (Version None)
Quarter: 2011Q3

REPORT INFORMATION
  Report Type: 
  Country: None (occurrence: None)
  Receive Date: 20110715
  Receipt Date: 20110715
  Transmission Date: 20111222
  Serious: Yes (Other)
  Sender: FDA-Public Use
  Company Number: None

PATIENT
  Sex: Male

DRUGS (1)
  1. TARGET HYGIENIC PADS [Suspect]
     Dosage: AS NEEDED

REACTIONS (2)
  - PRODUCT CONTAMINATION MICROBIAL [None]
  - RASH [None]
